FAERS Safety Report 6603202-9 (Version None)
Quarter: 2010Q1

REPORT INFORMATION
  Report Type: 
  Country: None (occurrence: None)
  Receive Date: 20100226
  Receipt Date: 20100216
  Transmission Date: 20100710
  Serious: Yes (Life-Threatening, Hospitalization, Other)
  Sender: FDA-Public Use
  Company Number: SE-PFIZER INC-2008084318

PATIENT
  Age: 58 Year
  Sex: Female
  Weight: 83 kg

DRUGS (13)
  1. SOMATROPIN [Suspect]
     Indication: HYPOPITUITARISM
     Dosage: 0.30 MG, 1X/DAY
     Dates: start: 19960611, end: 20080929
  2. HYDROCORTISONE [Concomitant]
     Indication: BLOOD CORTICOTROPHIN DECREASED
     Dosage: 20 MG, 1X/DAY
     Dates: start: 20070301
  3. LEVOTHYROXINE SODIUM [Concomitant]
     Indication: HYPOTHYROIDISM
     Dates: start: 20020219
  4. LIPITOR [Concomitant]
     Indication: HYPERCHOLESTEROLAEMIA
     Dates: start: 20001110
  5. LIVIAL [Concomitant]
     Dates: start: 20011001
  6. DESMOPRESSIN ACETATE [Concomitant]
     Indication: DIABETES INSIPIDUS
     Dates: start: 20070118
  7. DHEA [Concomitant]
     Indication: HYPOGONADISM
     Dates: start: 20021015
  8. RENITEC [Concomitant]
     Indication: HYPERTENSION
     Dates: start: 20020315
  9. RENITEC [Concomitant]
     Dosage: 2.5 MGX1
     Dates: start: 20090916, end: 20100213
  10. SOTALOL HCL [Concomitant]
     Indication: TACHYCARDIA
     Dates: start: 19960401
  11. SOTALOL HCL [Concomitant]
     Indication: HYPERTENSION
  12. TRIOBE [Concomitant]
     Indication: VITAMIN B12 DEFICIENCY
     Dates: start: 20031205
  13. TROMBYL [Concomitant]
     Indication: ARTERIOSCLEROSIS
     Dates: start: 20030601

REACTIONS (2)
  - CERVIX CARCINOMA STAGE II [None]
  - METASTASES TO LUNG [None]
